FAERS Safety Report 7816859-1 (Version None)
Quarter: 2011Q4

REPORT INFORMATION
  Report Type: 
  Country: None (occurrence: None)
  Receive Date: 20111017
  Receipt Date: 20101101
  Transmission Date: 20120403
  Serious: No
  Sender: FDA-Public Use
  Company Number: US-GLAXOSMITHKLINE-A0889969A

PATIENT
  Age: 46 Year
  Sex: Female

DRUGS (1)
  1. CEFTIN [Suspect]
     Indication: ESCHERICHIA INFECTION
     Dosage: 500MG TWICE PER DAY
     Route: 048
     Dates: start: 20101011, end: 20101014

REACTIONS (2)
  - ADVERSE DRUG REACTION [None]
  - RASH [None]
